FAERS Safety Report 9468146 (Version 1)
Quarter: 2013Q3

REPORT INFORMATION
  Report Type: Spontaneous
  Country: US (occurrence: None)
  Receive Date: 20130816
  Receipt Date: 20130816
  Transmission Date: 20140515
  Serious: Yes (Death, Life-Threatening, Hospitalization)
  Sender: FDA-Public Use
  Company Number: 1713747-2013-99933

PATIENT
  Sex: Female

DRUGS (5)
  1. SALINE [Suspect]
  2. 2008K HEMODIALYSIS MACHINE [Concomitant]
  3. BLOODLINES [Concomitant]
  4. DIALYZER [Concomitant]
  5. CONCENTRATED ASPIRIN FREE INFANTS [Concomitant]

REACTIONS (5)
  - Unresponsive to stimuli [None]
  - Blood pressure fluctuation [None]
  - Cardio-respiratory arrest [None]
  - Procedural complication [None]
  - Infusion related reaction [None]
